FAERS Safety Report 17558288 (Version 1)
Quarter: 2020Q1

REPORT INFORMATION
  Report Type: Spontaneous
  Country: IE (occurrence: IE)
  Receive Date: 20200318
  Receipt Date: 20200318
  Transmission Date: 20200409
  Serious: Yes (Life-Threatening, Hospitalization, Other)
  Sender: FDA-Public Use
  Company Number: IE-VALIDUS PHARMACEUTICALS LLC-IE-2020VAL000189

PATIENT

DRUGS (1)
  1. FUROSEMIDE. [Suspect]
     Active Substance: FUROSEMIDE
     Indication: HYPOXIA
     Dosage: 20 MG, UNK
     Route: 042

REACTIONS (3)
  - Mitral valve disease [Unknown]
  - Hypotension [Unknown]
  - Hypertension [Unknown]
